FAERS Safety Report 12278159 (Version 2)
Quarter: 2017Q1

REPORT INFORMATION
  Report Type: Report from Study
  Country: US (occurrence: US)
  Receive Date: 20160418
  Receipt Date: 20170322
  Transmission Date: 20170428
  Serious: No
  Sender: FDA-Public Use
  Company Number: PHHY2015US005719

PATIENT
  Age: 46 Year
  Sex: Female

DRUGS (2)
  1. INFLUENZA VACCINE [Concomitant]
     Active Substance: INFLUENZA VIRUS VACCINE
     Indication: PRODUCT USED FOR UNKNOWN INDICATION
     Dosage: UNK
     Route: 065
     Dates: start: 20151013, end: 20151013
  2. GILENYA [Suspect]
     Active Substance: FINGOLIMOD HYDROCHLORIDE
     Indication: MULTIPLE SCLEROSIS
     Dosage: UNK, QD
     Route: 048

REACTIONS (8)
  - Blood sodium decreased [Unknown]
  - Urinary hesitation [Unknown]
  - Alanine aminotransferase increased [Unknown]
  - Blood potassium decreased [Unknown]
  - Lymphocyte count decreased [Unknown]
  - Bradycardia [Unknown]
  - Vertigo [Recovered/Resolved]
  - Micturition urgency [Unknown]

NARRATIVE: CASE EVENT DATE: 20121002
